FAERS Safety Report 4380031-0 (Version None)
Quarter: 2004Q2

REPORT INFORMATION
  Report Type: 
  Country: None (occurrence: None)
  Receive Date: 20040614
  Receipt Date: 20040602
  Transmission Date: 20050107
  Serious: Yes (Life-Threatening)
  Sender: FDA-Public Use
  Company Number: K200400263

PATIENT
  Age: 64 Year
  Sex: Female

DRUGS (9)
  1. ALTACE [Suspect]
     Dates: start: 20001103, end: 20031201
  2. CRESTOR [Suspect]
     Indication: HYPERCHOLESTEROLAEMIA
     Dosage: 40 MG, QD, ORAL
     Route: 048
     Dates: start: 20030901, end: 20040117
  3. BENDROFLUAZIDE [Concomitant]
  4. BISOPROLOL FUMARATE [Concomitant]
  5. DILTIAZEM [Concomitant]
  6. ASPIRIN [Concomitant]
  7. OMEPRAZOLE [Concomitant]
  8. GLICLAZIDE            (GLICLAZIDE) [Concomitant]
  9. ATORVASTATIN          (ATORVASTATIN) [Concomitant]

REACTIONS (4)
  - DEHYDRATION [None]
  - NOCTURIA [None]
  - RENAL FAILURE ACUTE [None]
  - RHABDOMYOLYSIS [None]
